FAERS Safety Report 6887363-2 (Version None)
Quarter: 2010Q3

REPORT INFORMATION
  Report Type: 
  Country: None (occurrence: None)
  Receive Date: 20100730
  Receipt Date: 20091022
  Transmission Date: 20110219
  Serious: No
  Sender: FDA-Public Use
  Company Number: A0812996A

PATIENT
  Age: 38 Year
  Sex: Female

DRUGS (16)
  1. IMITREX [Suspect]
     Indication: MIGRAINE
     Dosage: 100MG AS REQUIRED
     Route: 048
     Dates: start: 20070101, end: 20090101
  2. TOPAMAX [Concomitant]
  3. ANTI-CHOLESTEROL MEDICATION [Concomitant]
  4. ZITHROMAX [Concomitant]
  5. SIMVASTATIN [Concomitant]
  6. FOLIC ACID [Concomitant]
     Route: 048
  7. VITAMIN B12 SHOT [Concomitant]
  8. XANAX [Concomitant]
  9. RESTORIL [Concomitant]
  10. CELEXA [Concomitant]
  11. UNSPECIFIED MEDICATION [Concomitant]
  12. RELPAX [Concomitant]
  13. LYRICA [Concomitant]
  14. LASIX [Concomitant]
  15. GABAPENTIN [Concomitant]
  16. HYDROCODONE BITARTRATE [Concomitant]

REACTIONS (1)
  - DRUG INEFFECTIVE [None]
